FAERS Safety Report 12675379 (Version 3)
Quarter: 2016Q3

REPORT INFORMATION
  Report Type: Report from Study
  Country: BE (occurrence: BE)
  Receive Date: 20160822
  Receipt Date: 20160917
  Transmission Date: 20161109
  Serious: Yes (Death, Hospitalization, Other)
  Sender: FDA-Public Use
  Company Number: BE-AMGEN-BELNI2016108833

PATIENT
  Age: 82 Year
  Sex: Male

DRUGS (1)
  1. CARFILZOMIB [Suspect]
     Active Substance: CARFILZOMIB
     Indication: PLASMA CELL MYELOMA
     Dosage: 33 MG, 2 TIMES/WK
     Route: 042
     Dates: start: 20160630

REACTIONS (1)
  - Hospitalisation [Fatal]

NARRATIVE: CASE EVENT DATE: 20160728
